FAERS Safety Report 21511090 (Version 2)
Quarter: 2023Q2

REPORT INFORMATION
  Report Type: Spontaneous
  Country: US (occurrence: US)
  Receive Date: 20221027
  Receipt Date: 20230502
  Transmission Date: 20230721
  Serious: Yes (Hospitalization, Other)
  Sender: FDA-Public Use
  Company Number: US-drreddys-SPO/USA/22/0156225

PATIENT
  Age: 59 Year
  Sex: Male

DRUGS (3)
  1. HEPARIN SODIUM [Suspect]
     Active Substance: HEPARIN SODIUM
     Indication: Pulmonary embolism
  2. NITROGLYCERIN [Concomitant]
     Active Substance: NITROGLYCERIN
     Indication: Pulmonary embolism
     Route: 060
  3. MORPHINE [Concomitant]
     Active Substance: MORPHINE
     Indication: Chest pain

REACTIONS (1)
  - Heparin-induced thrombocytopenia [Recovered/Resolved]
